FAERS Safety Report 9168805 (Version 1)
Quarter: 2013Q1

REPORT INFORMATION
  Report Type: Spontaneous
  Country: FR (occurrence: None)
  Receive Date: 20130308
  Receipt Date: 20130308
  Transmission Date: 20140127
  Serious: Yes (Hospitalization)
  Sender: FDA-Public Use
  Company Number: 1620350

PATIENT
  Age: 61 Year
  Sex: Female

DRUGS (9)
  1. GEMCITABINE HYDROCHLORIDE [Suspect]
     Indication: PRODUCT USED FOR UNKNOWN INDICATION
     Dosage: INTRAVENOUS (NOT OTHERWISE SPECIFIED)
     Route: 042
     Dates: start: 20130131
  2. OXALIPATIN [Suspect]
     Dosage: INTRAVENOUS (NOT OTHERWISE SPECIFIED)
     Route: 042
     Dates: start: 20130130
  3. EFFEXOR [Concomitant]
  4. LEXOMIL [Concomitant]
  5. ATARAX /00058401/ [Concomitant]
  6. DOLIPRANE [Concomitant]
  7. LOVENOX [Concomitant]
  8. PRIMPERAN [Concomitant]
  9. ZOPHREN /11955301/ [Concomitant]

REACTIONS (5)
  - Pyrexia [None]
  - Erythema [None]
  - Nausea [None]
  - Vomiting [None]
  - Chemotherapy toxicity attenuation [None]
